FAERS Safety Report 4456349-X (Version None)
Quarter: 2004Q3

REPORT INFORMATION
  Report Type: 
  Country: None (occurrence: None)
  Receive Date: 20040917
  Receipt Date: 20040906
  Transmission Date: 20050211
  Serious: No
  Sender: FDA-Public Use
  Company Number: 2003SE01072

PATIENT
  Age: 60 Year
  Sex: Male

DRUGS (19)
  1. BLOPRESS [Suspect]
     Indication: HYPERTENSION
     Dosage: 1 DF DAILY PO
     Route: 048
     Dates: start: 20020628, end: 20020911
  2. OMEPRAZOLE [Suspect]
     Indication: GASTRITIS
     Dosage: 10 MG DAILY PO
     Route: 048
     Dates: start: 20020402, end: 20030219
  3. 8-HOUR BAYER [Suspect]
     Indication: PLATELET AGGREGATION
     Dosage: 100 MG DAILY PO
     Route: 048
     Dates: start: 20010921, end: 20030219
  4. ALLOPURINOL TAB [Suspect]
     Indication: HYPERURICAEMIA
     Dosage: 100 MG DAILY PO
     Route: 048
     Dates: start: 20000419, end: 20030219
  5. LIPLE [Suspect]
     Indication: ATHEROSCLEROSIS OBLITERANS
     Dosage: 10 UG DAILY IV
     Route: 042
     Dates: start: 20021211, end: 20030117
  6. LIPLE [Suspect]
     Indication: ATHEROSCLEROSIS OBLITERANS
     Dosage: 10 UG DAILY IV
     Route: 042
     Dates: start: 20030127, end: 20030214
  7. EMPYNASE P [Concomitant]
     Indication: NASOPHARYNGITIS
     Dosage: 2 DF DAILY PO
     Route: 048
     Dates: start: 20030214, end: 20030218
  8. PRERAN [Suspect]
     Indication: HYPERTENSION
     Dosage: 1 DF DAILY PO
     Route: 048
     Dates: start: 20020628, end: 20030219
  9. ANPLAG [Concomitant]
     Indication: PLATELET AGGREGATION
     Dosage: 300 MG DAILY PO
     Route: 048
     Dates: start: 20011127, end: 20030219
  10. FRANDOL [Concomitant]
  11. PRECIPITATED CALCIUM CARBONATE [Concomitant]
  12. SELBEX [Concomitant]
  13. CARDENALIN [Concomitant]
  14. PURSENNID [Concomitant]
  15. PENFILL R [Concomitant]
  16. NORVASC [Concomitant]
  17. HERLAT [Concomitant]
  18. GLAKAY [Concomitant]
  19. NO MATCH [Concomitant]

REACTIONS (5)
  - CONDITION AGGRAVATED [None]
  - HAEMODIALYSIS [None]
  - HYPERTENSION [None]
  - MEDICAL DEVICE COMPLICATION [None]
  - PLATELET COUNT DECREASED [None]
